FAERS Safety Report 8827640 (Version 3)
Quarter: 2015Q3

REPORT INFORMATION
  Report Type: Report from Study
  Country: US (occurrence: US)
  Receive Date: 20121005
  Receipt Date: 20150826
  Transmission Date: 20151125
  Serious: Yes (Death, Hospitalization, Other)
  Sender: FDA-Public Use
  Company Number: US-ROCHE-1096749

PATIENT
  Age: 64 Year
  Sex: Female

DRUGS (17)
  1. PREDNISONE. [Concomitant]
     Active Substance: PREDNISONE
  2. ACETAMINOPHEN. [Concomitant]
     Active Substance: ACETAMINOPHEN
  3. BENADRYL [Concomitant]
     Active Substance: DIPHENHYDRAMINE HYDROCHLORIDE
     Route: 042
  4. RITUXAN [Suspect]
     Active Substance: RITUXIMAB
     Route: 042
  5. HYDROXYDAUNORUBICIN [Concomitant]
     Active Substance: DOXORUBICIN
  6. RITUXAN [Suspect]
     Active Substance: RITUXIMAB
     Indication: CHRONIC LYMPHOCYTIC LEUKAEMIA
     Route: 042
  7. EPINEPHRINE. [Concomitant]
     Active Substance: EPINEPHRINE
  8. RITUXAN [Suspect]
     Active Substance: RITUXIMAB
     Route: 042
  9. CYCLOPHOSPHAMIDE. [Concomitant]
     Active Substance: CYCLOPHOSPHAMIDE
  10. ONCOVIN [Concomitant]
     Active Substance: VINCRISTINE SULFATE
  11. PHENERGAN [Concomitant]
     Active Substance: PROMETHAZINE HYDROCHLORIDE
  12. PROCRIT [Concomitant]
     Active Substance: ERYTHROPOIETIN
  13. TYLENOL [Concomitant]
     Active Substance: ACETAMINOPHEN
     Route: 048
  14. TYLENOL [Concomitant]
     Active Substance: ACETAMINOPHEN
     Route: 048
  15. LASIX [Concomitant]
     Active Substance: FUROSEMIDE
  16. CLARITIN [Concomitant]
     Active Substance: LORATADINE
  17. REGLAN [Concomitant]
     Active Substance: METOCLOPRAMIDE HYDROCHLORIDE

REACTIONS (39)
  - Vomiting [Unknown]
  - Decreased appetite [Unknown]
  - Fatigue [Unknown]
  - Hypersomnia [Unknown]
  - Injection site reaction [Unknown]
  - Dehydration [Unknown]
  - Feeling abnormal [Unknown]
  - Hypogammaglobulinaemia [Unknown]
  - Malaise [Unknown]
  - Tongue ulceration [Unknown]
  - Pyrexia [Unknown]
  - Dyspnoea [Unknown]
  - Odynophagia [Unknown]
  - Asthenia [Unknown]
  - Malaise [Unknown]
  - Anaemia [Unknown]
  - Insomnia [Unknown]
  - Abdominal pain upper [Unknown]
  - Nausea [Unknown]
  - Lymphocytic leukaemia [Unknown]
  - Respiratory tract congestion [Recovered/Resolved]
  - Tenderness [Unknown]
  - Flank pain [Unknown]
  - Dysphagia [Unknown]
  - Stomatitis [Unknown]
  - Urine flow decreased [Unknown]
  - Upper-airway cough syndrome [Unknown]
  - Chronic sinusitis [Unknown]
  - Infection [Unknown]
  - Peripheral swelling [Unknown]
  - Meningitis [Unknown]
  - General physical health deterioration [Fatal]
  - Hypophagia [Unknown]
  - Hyponatraemia [Unknown]
  - Cough [Unknown]
  - Abdominal pain [Unknown]
  - Hydronephrosis [Unknown]
  - Oedema peripheral [Unknown]
  - Splenomegaly [Unknown]

NARRATIVE: CASE EVENT DATE: 20000511
